FAERS Safety Report 14716238 (Version 2)
Quarter: 2018Q3

REPORT INFORMATION
  Report Type: Spontaneous
  Country: US (occurrence: US)
  Receive Date: 20180404
  Receipt Date: 20180903
  Transmission Date: 20181010
  Serious: No
  Sender: FDA-Public Use
  Company Number: US-ELI_LILLY_AND_COMPANY-US201804001318

PATIENT
  Sex: Female

DRUGS (1)
  1. TALTZ [Suspect]
     Active Substance: IXEKIZUMAB
     Indication: PSORIASIS
     Dosage: UNK, UNKNOWN
     Route: 058

REACTIONS (8)
  - Injection site pruritus [Recovered/Resolved]
  - Injection site pain [Unknown]
  - Injection site vesicles [Recovered/Resolved]
  - Injection site urticaria [Recovered/Resolved]
  - Urticaria [Unknown]
  - Injection site swelling [Recovered/Resolved]
  - Injection site pruritus [Recovering/Resolving]
  - Injection site erythema [Recovering/Resolving]
